FAERS Safety Report 26102117 (Version 1)
Quarter: 2025Q4

REPORT INFORMATION
  Report Type: Spontaneous
  Country: EU (occurrence: EU)
  Receive Date: 20251128
  Receipt Date: 20251128
  Transmission Date: 20260117
  Serious: Yes (Life-Threatening, Hospitalization)
  Sender: SANOFI AVENTIS
  Company Number: EU-PEI-202500023864

PATIENT
  Age: 14 Day
  Sex: Female

DRUGS (1)
  1. BEYFORTUS [Suspect]
     Active Substance: NIRSEVIMAB-ALIP
     Indication: Respiratory syncytial virus immunisation
     Dosage: 1 DF, 1X
     Dates: start: 20251020, end: 20251020

REACTIONS (1)
  - Staphylococcal skin infection [Unknown]

NARRATIVE: CASE EVENT DATE: 20251022
